FAERS Safety Report 11883340 (Version 1)
Quarter: 2015Q4

REPORT INFORMATION
  Report Type: Spontaneous
  Country: IT (occurrence: IT)
  Receive Date: 20151231
  Receipt Date: 20151231
  Transmission Date: 20160305
  Serious: Yes (Other)
  Sender: FDA-Public Use
  Company Number: IT-PRINSTON PHARMACEUTICAL INC.-2015PRN00160

PATIENT

DRUGS (1)
  1. RAMIPRIL AND HYDROCHLOROTHIAZIDE [Suspect]
     Active Substance: HYDROCHLOROTHIAZIDE\RAMIPRIL
     Indication: CARDIOVASCULAR DISORDER
     Route: 065

REACTIONS (1)
  - Drug reaction with eosinophilia and systemic symptoms [Recovered/Resolved]
